FAERS Safety Report 4932206-7 (Version None)
Quarter: 2006Q1

REPORT INFORMATION
  Report Type: 
  Country: None (occurrence: None)
  Receive Date: 20060228
  Receipt Date: 20060218
  Transmission Date: 20060701
  Serious: Yes (Other)
  Sender: FDA-Public Use
  Company Number: 2006025695

PATIENT

DRUGS (1)
  1. DEPO-MEDROL [Suspect]
     Indication: ILL-DEFINED DISORDER
     Dosage: (1 IN 1 D), INTRAVENOUS
     Route: 042
     Dates: start: 20060218, end: 20060218

REACTIONS (1)
  - INCORRECT ROUTE OF DRUG ADMINISTRATION [None]
